FAERS Safety Report 13348044 (Version 2)
Quarter: 2017Q2

REPORT INFORMATION
  Report Type: Spontaneous
  Country: MX (occurrence: MX)
  Receive Date: 20170318
  Receipt Date: 20170516
  Transmission Date: 20170830
  Serious: Yes (Hospitalization, Other)
  Sender: FDA-Public Use
  Company Number: MX-ASTRAZENECA-2017SE27936

PATIENT
  Age: 40 Year
  Sex: Female

DRUGS (1)
  1. FORXIGA [Suspect]
     Active Substance: DAPAGLIFLOZIN
     Indication: DIABETES MELLITUS
     Route: 048
     Dates: start: 201701, end: 201702

REACTIONS (2)
  - Ketoacidosis [Recovered/Resolved]
  - Emphysematous cystitis [Recovered/Resolved]

NARRATIVE: CASE EVENT DATE: 201702
